FAERS Safety Report 14363466 (Version 1)
Quarter: 2017Q4

REPORT INFORMATION
  Report Type: Spontaneous
  Country: JP (occurrence: None)
  Receive Date: 20171226
  Receipt Date: 20171226
  Transmission Date: 20180321
  Serious: Yes (Hospitalization, Other)
  Sender: FDA-Public Use
  Company Number: 2017-229658

PATIENT
  Age: 33 Year
  Sex: Female
  Weight: 57.5 kg

DRUGS (1)
  1. BAYASPIRIN 100 MG (ACETYLSALICYLIC ACID) GASTRO-RESISTANT TABLET, 100 MG [Suspect]
     Active Substance: ASPIRIN
     Indication: HEADACHE

REACTIONS (5)
  - Ventricular fibrillation [None]
  - Cardiac arrest [None]
  - Acute myocardial infarction [None]
  - Prinzmetal angina [None]
  - Aspirin-exacerbated respiratory disease [None]
